FAERS Safety Report 25072731 (Version 1)
Quarter: 2025Q1

REPORT INFORMATION
  Report Type: Spontaneous
  Country: CL (occurrence: CL)
  Receive Date: 20250313
  Receipt Date: 20250313
  Transmission Date: 20250408
  Serious: Yes (Disabling)
  Sender: ROCHE
  Company Number: CL-ROCHE-10000224094

PATIENT
  Sex: Female

DRUGS (3)
  1. AVASTIN [Suspect]
     Active Substance: BEVACIZUMAB
     Indication: Product used for unknown indication
     Route: 065
  2. FARICIMAB [Suspect]
     Active Substance: FARICIMAB
     Indication: Product used for unknown indication
     Route: 065
  3. TIMOLOL [Concomitant]
     Active Substance: TIMOLOL
     Indication: Intraocular pressure increased

REACTIONS (9)
  - Off label use [Unknown]
  - Vitreous opacities [Unknown]
  - Blindness [Unknown]
  - Intraocular pressure increased [Not Recovered/Not Resolved]
  - Vitritis [Unknown]
  - Corneal oedema [Unknown]
  - Uveitis [Unknown]
  - Visual acuity reduced [Not Recovered/Not Resolved]
  - Eye irritation [Not Recovered/Not Resolved]

NARRATIVE: CASE EVENT DATE: 20250221
